FAERS Safety Report 24130680 (Version 3)
Quarter: 2025Q3

REPORT INFORMATION
  Report Type: Spontaneous
  Country: US (occurrence: US)
  Receive Date: 20240724
  Receipt Date: 20250811
  Transmission Date: 20251021
  Serious: Yes (Death, Other)
  Sender: AMGEN
  Company Number: US-AMGEN-USASP2024142780

PATIENT

DRUGS (1)
  1. BEVACIZUMAB [Suspect]
     Active Substance: BEVACIZUMAB
     Indication: Hepatocellular carcinoma
     Route: 065

REACTIONS (11)
  - Haemorrhage intracranial [Fatal]
  - Gastrointestinal haemorrhage [Fatal]
  - Immune-mediated adverse reaction [Unknown]
  - Hepatocellular carcinoma [Unknown]
  - Tumour haemorrhage [Unknown]
  - Hypertension [Unknown]
  - Bleeding varicose vein [Unknown]
  - Fatigue [Unknown]
  - Epistaxis [Unknown]
  - Therapy partial responder [Unknown]
  - Off label use [Unknown]
